FAERS Safety Report 15094514 (Version 1)
Quarter: 2018Q2

REPORT INFORMATION
  Report Type: Spontaneous
  Country: GB (occurrence: GB)
  Receive Date: 20180630
  Receipt Date: 20180630
  Transmission Date: 20180711
  Serious: Yes (Hospitalization, Other)
  Sender: FDA-Public Use
  Company Number: GB-ALEXION PHARMACEUTICALS INC.-A201807908

PATIENT
  Age: 29 Year
  Sex: Female
  Weight: 48 kg

DRUGS (2)
  1. SOLIRIS [Suspect]
     Active Substance: ECULIZUMAB
     Indication: PRODUCT USED FOR UNKNOWN INDICATION
     Route: 065
  2. IMPLANON [Concomitant]
     Active Substance: ETONOGESTREL
     Indication: PRODUCT USED FOR UNKNOWN INDICATION
     Dosage: UNK
     Route: 065

REACTIONS (10)
  - Purpura [Unknown]
  - Headache [Unknown]
  - Treatment noncompliance [Unknown]
  - Seizure [Unknown]
  - Posterior reversible encephalopathy syndrome [Unknown]
  - Vomiting [Unknown]
  - Neurological decompensation [Unknown]
  - Hypertension [Unknown]
  - Exposure during pregnancy [Unknown]
  - Inappropriate schedule of drug administration [Unknown]
